FAERS Safety Report 9665608 (Version 1)
Quarter: 2013Q4

REPORT INFORMATION
  Report Type: Spontaneous
  Country: US (occurrence: None)
  Receive Date: 20131031
  Receipt Date: 20131031
  Transmission Date: 20140711
  Serious: Yes (Hospitalization)
  Sender: FDA-Public Use
  Company Number: None

PATIENT
  Age: 27 Year
  Sex: Female
  Weight: 108.41 kg

DRUGS (5)
  1. NICOTROL [Suspect]
     Indication: SMOKING CESSATION THERAPY
     Dosage: 10MG  CARTRIDGE (4-12/DAY)
     Dates: start: 20130414, end: 20130516
  2. PRENATAL VITAMIN WITH FOLIC ACID [Concomitant]
  3. METHADONE [Concomitant]
  4. SEROQUIL [Concomitant]
  5. CELEXA [Concomitant]

REACTIONS (4)
  - Maternal exposure during pregnancy [None]
  - Drug dependence [None]
  - Drug withdrawal syndrome neonatal [None]
  - Maternal drugs affecting foetus [None]
